FAERS Safety Report 6851541-9 (Version None)
Quarter: 2010Q3

REPORT INFORMATION
  Report Type: 
  Country: None (occurrence: None)
  Receive Date: 20100717
  Receipt Date: 20080116
  Transmission Date: 20110219
  Serious: No
  Sender: FDA-Public Use
  Company Number: US-PFIZER INC-2008007006

PATIENT
  Sex: Female
  Weight: 81.4 kg

DRUGS (15)
  1. CHANTIX [Suspect]
     Indication: SMOKING CESSATION THERAPY
     Route: 048
     Dates: start: 20071221
  2. LORATADINE [Concomitant]
  3. HYOSCYAMINE [Concomitant]
  4. HYZAAR [Concomitant]
  5. LOPID [Concomitant]
  6. NORVASC [Concomitant]
  7. FUROSEMIDE [Concomitant]
  8. ALEVE (CAPLET) [Concomitant]
  9. FISH OIL [Concomitant]
  10. OSTEO BI-FLEX [Concomitant]
  11. CEFDINIR [Concomitant]
     Dates: end: 20080112
  12. TOPROL-XL [Concomitant]
  13. DARVOCET [Concomitant]
  14. CALCIUM [Concomitant]
  15. PREMARIN [Concomitant]

REACTIONS (2)
  - HUNGER [None]
  - SOMNOLENCE [None]
